FAERS Safety Report 6221676-2 (Version None)
Quarter: 2009Q2

REPORT INFORMATION
  Report Type: 
  Country: None (occurrence: None)
  Receive Date: 20090610
  Receipt Date: 20090601
  Transmission Date: 20091009
  Serious: Yes (Congenital Anomaly)
  Sender: FDA-Public Use
  Company Number: TW-ABBOTT-08P-153-0483783-00

PATIENT
  Age: 1 Month
  Sex: Female
  Weight: 2.75 kg

DRUGS (2)
  1. REDUCTIL 15MG [Suspect]
     Indication: DRUG EXPOSURE DURING PREGNANCY
     Route: 064
  2. REDUCTIL 15MG [Suspect]
     Route: 048

REACTIONS (2)
  - DRUG EXPOSURE DURING PREGNANCY [None]
  - HEARING IMPAIRED [None]
